FAERS Safety Report 4322622-9 (Version None)
Quarter: 2004Q1

REPORT INFORMATION
  Report Type: 
  Country: None (occurrence: None)
  Receive Date: 20040324
  Receipt Date: 20040322
  Transmission Date: 20041129
  Serious: Yes (Hospitalization)
  Sender: FDA-Public Use
  Company Number: WAES 0403DEU00139

PATIENT
  Age: 89 Year
  Sex: Female
  Weight: 60 kg

DRUGS (8)
  1. ALBUTEROL SULFATE [Concomitant]
     Indication: CHRONIC OBSTRUCTIVE AIRWAYS DISEASE
     Route: 048
  2. AMITRIPTYLINE HYDROCHLORIDE [Concomitant]
     Indication: DEPRESSION
     Route: 048
     Dates: end: 20040111
  3. BUDESONIDE AND FORMOTEROL FUMARATE [Concomitant]
     Indication: CHRONIC OBSTRUCTIVE AIRWAYS DISEASE
     Route: 055
  4. GINKGO BILOBA EXTRACT [Concomitant]
     Indication: MEMORY IMPAIRMENT
     Route: 048
     Dates: start: 20020101
  5. GLIMEPIRIDE [Concomitant]
     Indication: DIABETES MELLITUS NON-INSULIN-DEPENDENT
     Route: 048
     Dates: start: 20000101
  6. HYDROCHLOROTHIAZIDE AND IRBESARTAN [Suspect]
     Indication: HYPERTENSION
     Route: 048
  7. NEBIVOLOL HYDROCHLORIDE [Suspect]
     Indication: HYPERTENSION
     Route: 048
     Dates: start: 19990101, end: 20040111
  8. VIOXX [Suspect]
     Indication: LOCALISED OSTEOARTHRITIS
     Route: 048
     Dates: start: 20020101, end: 20040111

REACTIONS (6)
  - ATRIOVENTRICULAR BLOCK COMPLETE [None]
  - BLOOD UREA INCREASED [None]
  - BUNDLE BRANCH BLOCK LEFT [None]
  - ELECTROCARDIOGRAM QT PROLONGED [None]
  - HYPERKALAEMIA [None]
  - SYNCOPE [None]
